FAERS Safety Report 4642216-5 (Version None)
Quarter: 2005Q2

REPORT INFORMATION
  Report Type: 
  Country: None (occurrence: None)
  Receive Date: 20050422
  Receipt Date: 20050401
  Transmission Date: 20051028
  Serious: Yes (Death, Life-Threatening, Hospitalization)
  Sender: FDA-Public Use
  Company Number: PHHO2005BE05408

PATIENT
  Age: 72 Year
  Sex: Male

DRUGS (5)
  1. FLUDEX [Concomitant]
  2. ASPIRIN [Concomitant]
  3. EXELON [Suspect]
     Indication: DEMENTIA
     Dosage: 1.5 MG, BID
     Route: 048
     Dates: start: 20050325
  4. GINKGO BILOBA [Concomitant]
  5. VIAGRA [Concomitant]

REACTIONS (5)
  - ANOXIC ENCEPHALOPATHY [None]
  - CARDIAC ARREST [None]
  - CARDIOVERSION [None]
  - COMA [None]
  - VENTRICULAR FIBRILLATION [None]
